FAERS Safety Report 10229657 (Version 1)
Quarter: 2014Q2

REPORT INFORMATION
  Report Type: Spontaneous
  Country: GB (occurrence: GB)
  Receive Date: 20140611
  Receipt Date: 20140611
  Transmission Date: 20141212
  Serious: Yes (Disabling)
  Sender: FDA-Public Use
  Company Number: GB-JNJFOC-20140604358

PATIENT
  Age: 71 Year
  Sex: Female
  Weight: 73 kg

DRUGS (5)
  1. XARELTO [Suspect]
     Indication: PRODUCT USED FOR UNKNOWN INDICATION
     Route: 048
     Dates: start: 20140521
  2. ASPIRIN [Concomitant]
     Route: 065
     Dates: start: 20140220
  3. OILATUM [Concomitant]
     Route: 065
     Dates: start: 20140220, end: 20140513
  4. RAMIPRIL [Concomitant]
     Route: 065
     Dates: start: 20140220, end: 20140513
  5. BISOPROLOL [Concomitant]
     Route: 065
     Dates: start: 20140220, end: 20140513

REACTIONS (1)
  - Vision blurred [Unknown]
